FAERS Safety Report 25998703 (Version 1)
Quarter: 2025Q4

REPORT INFORMATION
  Report Type: Spontaneous
  Country: US (occurrence: US)
  Receive Date: 20251105
  Receipt Date: 20251105
  Transmission Date: 20260117
  Serious: Yes (Other)
  Sender: ROCHE
  Company Number: US-ROCHE-10000423567

PATIENT
  Age: 24 Year
  Sex: Male

DRUGS (7)
  1. COBIMETINIB [Suspect]
     Active Substance: COBIMETINIB
     Indication: Xanthomatosis
     Dosage: ON DAYS 1-21 EVERY 28 DAYS WAS THEN INITIATED.
     Route: 048
  2. CLADRIBINE [Concomitant]
     Active Substance: CLADRIBINE
     Dosage: FOR FIVE DAYS EVERY THREE WEEKS.
     Route: 042
  3. CLOFARABINE [Concomitant]
     Active Substance: CLOFARABINE
     Dosage: FOR FIVE DAYS EVERY FOUR WEEKS.
     Route: 042
  4. TRAMETINIB [Concomitant]
     Active Substance: TRAMETINIB
     Route: 048
  5. TRAMETINIB [Concomitant]
     Active Substance: TRAMETINIB
     Route: 048
  6. TRAMETINIB [Concomitant]
     Active Substance: TRAMETINIB
     Route: 048
  7. LENALIDOMIDE [Concomitant]
     Active Substance: LENALIDOMIDE
     Dosage: ON DAY 1-21 EVERY 28 DAYS
     Route: 048

REACTIONS (2)
  - Dermatitis acneiform [Unknown]
  - Abdominal pain [Unknown]
